FAERS Safety Report 21010877 (Version 2)
Quarter: 2022Q3

REPORT INFORMATION
  Report Type: Report from Study
  Country: EG (occurrence: EG)
  Receive Date: 20220627
  Receipt Date: 20220704
  Transmission Date: 20221026
  Serious: Yes (Hospitalization, Other)
  Sender: FDA-Public Use
  Company Number: EG-NOVARTISPH-NVSC2022EG144118

PATIENT
  Age: 50 Year
  Sex: Male

DRUGS (16)
  1. ENTRESTO [Suspect]
     Active Substance: SACUBITRIL\VALSARTAN
     Indication: Cardiac failure
     Dosage: 1 DOSAGE FORM, BID (50 MG) (6-7 MONTHS AGO)
     Route: 048
     Dates: start: 2019
  2. ENTRESTO [Suspect]
     Active Substance: SACUBITRIL\VALSARTAN
     Dosage: 0.5 DOSAGE FORM, BID (50 MG, 6-7 MONTHS AGO -15 DAYS AGO)
     Route: 048
     Dates: start: 2019
  3. ENTRESTO [Suspect]
     Active Substance: SACUBITRIL\VALSARTAN
     Dosage: 0.5 DOSAGE FORM, BID (50 MG, FROM 7 DAYS AGO)
     Route: 048
     Dates: start: 2019
  4. CARVEDILOL [Concomitant]
     Active Substance: CARVEDILOL
     Indication: Cardiac failure
     Dosage: 0.5 DOSAGE FORM, QD (AT NIGHT)
     Route: 048
     Dates: start: 2019
  5. CORDARONE [Concomitant]
     Active Substance: AMIODARONE HYDROCHLORIDE
     Indication: Cardiac failure
     Dosage: 1 DOSAGE FORM, BID
     Route: 048
     Dates: start: 2019
  6. CORDARONE [Concomitant]
     Active Substance: AMIODARONE HYDROCHLORIDE
     Dosage: 1 DOSAGE FORM, QD
     Route: 048
     Dates: start: 2021
  7. LANOXIN [Concomitant]
     Active Substance: DIGOXIN
     Indication: Cardiac failure
     Dosage: 0.5 DOSAGE FORM, QD (EXCEPT ON FRIDAYS, FROM 2019-TILL 6-7 MONTHS AGO)
     Route: 048
     Dates: start: 2019
  8. LANOXIN [Concomitant]
     Active Substance: DIGOXIN
     Dosage: 0.5 DOSAGE FORM, QD (EXCEPT ON THURSDAYS AND FRIDAYS FROM 6 OR 7 MONTHS AGO TILL ONGOING)
     Route: 048
  9. VASTAREL [Concomitant]
     Active Substance: TRIMETAZIDINE DIHYDROCHLORIDE
     Indication: Cardiac failure
     Dosage: 1 DOSAGE FORM, QD
     Route: 048
     Dates: start: 2019
  10. WARFARIN SODIUM [Concomitant]
     Active Substance: WARFARIN SODIUM
     Indication: Cardiac failure
     Dosage: 1 DOSAGE FORM, QD (AT NIGHT)
     Route: 048
     Dates: start: 2019
  11. TORSEMIDE [Concomitant]
     Active Substance: TORSEMIDE
     Indication: Diuretic therapy
     Dosage: 1 DOSAGE FORM, QD (AT MORNING)
     Route: 048
     Dates: start: 2019
  12. DEPOVIT B12 [Concomitant]
     Indication: Prophylaxis
     Dosage: 1 DOSAGE FORM, QW (AMPOULE)
     Route: 065
  13. UROSOLVINE [Concomitant]
     Indication: Blood uric acid
     Dosage: 3 DOSAGE FORM, QD (SACHETS , EFFERVSCENT)
     Route: 065
  14. FEBUXOSTAT [Concomitant]
     Active Substance: FEBUXOSTAT
     Indication: Blood uric acid abnormal
     Dosage: 1 DOSAGE FORM
     Route: 048
  15. DEXA [Concomitant]
     Indication: Drug hypersensitivity
     Dosage: UNK (AMPOULES WHEN NEEDED DUE TO ALLERGIC REACTION)
     Route: 065
  16. PHENIRAMINE [Concomitant]
     Active Substance: PHENIRAMINE
     Indication: Drug hypersensitivity
     Dosage: UNK (AMPOULE WHEN NEEDED DUE TO ALLERGIC REACTION)
     Route: 065

REACTIONS (10)
  - Hypersensitivity [Recovered/Resolved]
  - Blood creatinine increased [Recovering/Resolving]
  - Pollakiuria [Recovered/Resolved]
  - Discomfort [Recovered/Resolved]
  - Wrong technique in product usage process [Recovering/Resolving]
  - Blood uric acid increased [Recovering/Resolving]
  - Oedema peripheral [Recovered/Resolved]
  - Contusion [Recovering/Resolving]
  - Pain in extremity [Recovering/Resolving]
  - Limb injury [Recovering/Resolving]

NARRATIVE: CASE EVENT DATE: 20220601
